FAERS Safety Report 7648618-7 (Version None)
Quarter: 2011Q3

REPORT INFORMATION
  Report Type: 
  Country: None (occurrence: None)
  Receive Date: 20110801
  Receipt Date: 20110718
  Transmission Date: 20111222
  Serious: Yes (Other)
  Sender: FDA-Public Use
  Company Number: PHHY2011US60971

PATIENT
  Sex: Male
  Weight: 53 kg

DRUGS (2)
  1. TOBI [Suspect]
     Dosage: 300 MG, BID (28 DAYS ON AND 28 DAYS OFF)
     Dates: start: 20110321
  2. TOBI [Suspect]
     Dosage: 300 MG, BID
     Dates: start: 20110620, end: 20110704

REACTIONS (2)
  - CHEST DISCOMFORT [None]
  - INFECTIVE PULMONARY EXACERBATION OF CYSTIC FIBROSIS [None]
